FAERS Safety Report 16794176 (Version 1)
Quarter: 2019Q3

REPORT INFORMATION
  Report Type: Spontaneous
  Country: IT (occurrence: IT)
  Receive Date: 20190911
  Receipt Date: 20190911
  Transmission Date: 20191005
  Serious: Yes (Hospitalization)
  Sender: FDA-Public Use
  Company Number: IT-ACCORD-154582

PATIENT
  Age: 61 Year
  Sex: Male

DRUGS (6)
  1. LASIX [Suspect]
     Active Substance: FUROSEMIDE
     Indication: HYPERTENSION
     Route: 048
     Dates: start: 20190802, end: 20190819
  2. DEBRIDAT [Concomitant]
     Active Substance: TRIMEBUTINE MALEATE
  3. CLEXANE [Concomitant]
     Active Substance: ENOXAPARIN SODIUM
  4. RAMIPRIL. [Suspect]
     Active Substance: RAMIPRIL
     Indication: HYPERTENSION
     Route: 048
     Dates: start: 20190802, end: 20190819
  5. MERREM [Concomitant]
     Active Substance: MEROPENEM
  6. PANTORC [Concomitant]
     Active Substance: PANTOPRAZOLE SODIUM
     Dosage: STRENGTH 40 MG

REACTIONS (2)
  - Therapy non-responder [Unknown]
  - Hypotension [Recovering/Resolving]

NARRATIVE: CASE EVENT DATE: 20190817
